FAERS Safety Report 14145561 (Version 3)
Quarter: 2018Q1

REPORT INFORMATION
  Report Type: Report from Study
  Country: NL (occurrence: NL)
  Receive Date: 20171031
  Receipt Date: 20180202
  Transmission Date: 20180508
  Serious: Yes (Death, Hospitalization, Other)
  Sender: FDA-Public Use
  Company Number: NL-AMGEN-NLDSL2017118480

PATIENT
  Age: 68 Year
  Sex: Male

DRUGS (7)
  1. PANTOPRAZOL [Concomitant]
     Active Substance: PANTOPRAZOLE SODIUM
     Dosage: 20 X 1X1
  2. XGEVA [Suspect]
     Active Substance: DENOSUMAB
     Dosage: UNK
     Route: 058
  3. XGEVA [Suspect]
     Active Substance: DENOSUMAB
     Dosage: UNK
     Route: 058
  4. XGEVA [Suspect]
     Active Substance: DENOSUMAB
     Dosage: UNK
     Route: 058
  5. DICLOFENAC [Concomitant]
     Active Substance: DICLOFENAC
     Dosage: (50 X 3 X1), AS NECESSARY
  6. XGEVA [Suspect]
     Active Substance: DENOSUMAB
     Indication: PROPHYLAXIS
     Dosage: 120 MG IN 1.70 ML Q4WK
     Route: 058
  7. XGEVA [Suspect]
     Active Substance: DENOSUMAB
     Dosage: UNK
     Route: 058

REACTIONS (5)
  - Haematuria [Unknown]
  - Micturition disorder [Unknown]
  - Abdominal pain [Not Recovered/Not Resolved]
  - Death [Fatal]
  - Blood urine present [Not Recovered/Not Resolved]

NARRATIVE: CASE EVENT DATE: 201707
